FAERS Safety Report 6907444-4 (Version None)
Quarter: 2010Q3

REPORT INFORMATION
  Report Type: 
  Country: None (occurrence: None)
  Receive Date: 20100805
  Receipt Date: 20100727
  Transmission Date: 20110219
  Serious: Yes (Hospitalization)
  Sender: FDA-Public Use
  Company Number: US-BIOGENIDEC-2010BI025755

PATIENT
  Age: 37 Year
  Sex: Female
  Weight: 72 kg

DRUGS (12)
  1. TYSABRI [Suspect]
     Indication: MULTIPLE SCLEROSIS
     Route: 042
     Dates: start: 20080711, end: 20100108
  2. TYSABRI [Suspect]
     Route: 042
     Dates: start: 20100402
  3. PROTONIX [Concomitant]
     Indication: GASTROOESOPHAGEAL REFLUX DISEASE
     Dates: start: 20080101
  4. LORTAB [Concomitant]
     Indication: PAIN
  5. MULTIVITAMIN NOS [Concomitant]
     Indication: SUPPLEMENTATION THERAPY
     Dates: start: 20080101
  6. FLEXERIL [Concomitant]
     Indication: MUSCLE SPASMS
     Dates: start: 20080101
  7. FLEXERIL [Concomitant]
     Indication: BACK PAIN
     Dates: start: 20080101
  8. DILAUDID [Concomitant]
     Indication: BACK PAIN
     Dates: start: 20080101
  9. ZOFRAN [Concomitant]
     Indication: NAUSEA
     Dates: start: 20080101
  10. VITAMIN B-12 [Concomitant]
     Indication: SUPPLEMENTATION THERAPY
     Route: 060
     Dates: start: 20100301
  11. CITRICAL [Concomitant]
     Indication: SUPPLEMENTATION THERAPY
     Dates: start: 20090101
  12. PROBIOTIC [Concomitant]
     Indication: IRRITABLE BOWEL SYNDROME

REACTIONS (4)
  - BACK PAIN [None]
  - CONSTIPATION [None]
  - MIGRAINE [None]
  - MULTIPLE SCLEROSIS RELAPSE [None]
